FAERS Safety Report 10263465 (Version 1)
Quarter: 2014Q2

REPORT INFORMATION
  Report Type: Spontaneous
  Country: US (occurrence: US)
  Receive Date: 20140626
  Receipt Date: 20140626
  Transmission Date: 20141212
  Serious: Yes (Hospitalization, Other)
  Sender: FDA-Public Use
  Company Number: US-TAKEDA-2014MPI001724

PATIENT
  Age: 69 Year
  Sex: Male

DRUGS (4)
  1. VELCADE [Suspect]
     Indication: CARDIAC AMYLOIDOSIS
     Dosage: 2.8 MG, Q4WEEKS
     Route: 058
     Dates: start: 201303
  2. VELCADE [Suspect]
     Dosage: 3.1 MG, UNK
     Route: 058
     Dates: start: 20131223
  3. VELCADE [Suspect]
     Dosage: 2.8 MG, UNK
     Route: 058
     Dates: start: 20140602
  4. ACYCLOVIR                          /00587301/ [Concomitant]

REACTIONS (10)
  - Pneumothorax [Recovering/Resolving]
  - Cardiac failure congestive [Unknown]
  - Renal failure [Recovering/Resolving]
  - Pleural effusion [Unknown]
  - Constipation [Unknown]
  - Gastrointestinal infection [Unknown]
  - Neuropathy peripheral [Unknown]
  - Diarrhoea [Unknown]
  - Nausea [Unknown]
  - Off label use [Unknown]
